FAERS Safety Report 18718574 (Version 9)
Quarter: 2021Q3

REPORT INFORMATION
  Report Type: Report from Study
  Country: US (occurrence: US)
  Receive Date: 20210108
  Receipt Date: 20210920
  Transmission Date: 20211014
  Serious: Yes (Other)
  Sender: FDA-Public Use
  Company Number: US-TAKEDA-US202011967

PATIENT
  Age: 63 Year
  Sex: Male

DRUGS (7)
  1. LANADELUMAB [Suspect]
     Active Substance: LANADELUMAB
     Dosage: 300 MILLIGRAM, 1X A MONTH
     Route: 058
     Dates: start: 20200317
  2. LANADELUMAB [Suspect]
     Active Substance: LANADELUMAB
     Indication: HEREDITARY ANGIOEDEMA
     Dosage: 300 MILLIGRAM, EVERY 28 DAYS
     Route: 058
     Dates: start: 20180529
  3. LANADELUMAB [Suspect]
     Active Substance: LANADELUMAB
     Indication: IMMUNE SYSTEM DISORDER
     Dosage: 300 MILLIGRAM, 1X/2WKS
     Route: 058
     Dates: start: 20190528
  4. LANADELUMAB [Suspect]
     Active Substance: LANADELUMAB
     Dosage: 300 MILLIGRAM, Q2WEEKS
     Route: 058
     Dates: start: 201905
  5. LANADELUMAB [Suspect]
     Active Substance: LANADELUMAB
     Dosage: 300 MILLIGRAM, EVERY 4 WEEKS
     Route: 058
     Dates: start: 20190528
  6. LANADELUMAB [Suspect]
     Active Substance: LANADELUMAB
     Dosage: 300 UNK
     Route: 058
     Dates: start: 20190616
  7. LANADELUMAB [Suspect]
     Active Substance: LANADELUMAB
     Dosage: 300 MILLIGRAM, Q2WEEKS
     Route: 058
     Dates: start: 20190529

REACTIONS (3)
  - Gastric operation [Unknown]
  - Dermatitis infected [Unknown]
  - Hereditary angioedema [Recovered/Resolved]

NARRATIVE: CASE EVENT DATE: 20210316
